FAERS Safety Report 23382271 (Version 1)
Quarter: 2024Q1

REPORT INFORMATION
  Report Type: Spontaneous
  Country: US (occurrence: US)
  Receive Date: 20240109
  Receipt Date: 20240109
  Transmission Date: 20240409
  Serious: Yes (Hospitalization)
  Sender: FDA-Public Use
  Company Number: US-MYLANLABS-2024M1001650

PATIENT
  Age: 37 Year
  Sex: Female

DRUGS (6)
  1. PEMETREXED [Suspect]
     Active Substance: PEMETREXED
     Indication: Non-small cell lung cancer metastatic
     Dosage: UNK
     Route: 065
  2. CARBOPLATIN [Suspect]
     Active Substance: CARBOPLATIN
     Indication: Non-small cell lung cancer metastatic
     Dosage: UNK
     Route: 065
  3. CABOZANTINIB [Suspect]
     Active Substance: CABOZANTINIB
     Indication: Non-small cell lung cancer metastatic
     Dosage: UNK
     Route: 065
  4. LORLATINIB [Concomitant]
     Active Substance: LORLATINIB
     Indication: Non-small cell lung cancer metastatic
     Dosage: UNK
     Route: 065
  5. LORLATINIB [Concomitant]
     Active Substance: LORLATINIB
     Dosage: 75 MILLIGRAM
     Route: 065
  6. LORLATINIB [Concomitant]
     Active Substance: LORLATINIB
     Dosage: 50 MILLIGRAM, QD
     Route: 065

REACTIONS (2)
  - Drug ineffective [Unknown]
  - Disease progression [Unknown]
